FAERS Safety Report 12436617 (Version 2)
Quarter: 2016Q2

REPORT INFORMATION
  Report Type: Spontaneous
  Country: JP (occurrence: JP)
  Receive Date: 20160606
  Receipt Date: 20160616
  Transmission Date: 20160815
  Serious: No
  Sender: FDA-Public Use
  Company Number: JP-ROCHE-1770148

PATIENT
  Age: 4 Year
  Sex: Female
  Weight: 14 kg

DRUGS (6)
  1. TAMIFLU [Suspect]
     Active Substance: OSELTAMIVIR PHOSPHATE
     Indication: INFLUENZA
     Route: 048
     Dates: start: 20160527, end: 2016
  2. CARBOCISTEINE [Concomitant]
     Active Substance: CARBOCYSTEINE
     Route: 048
     Dates: start: 20160527, end: 20160530
  3. NIPOLAZIN [Concomitant]
     Dosage: AMOUNT OF 1 ONCE ADMINISTRATION: 1.67 (UNIT UNCERTAINTY), FRACTIONATION DOSE ?UNCERTAIN FREQUENCY,
     Route: 048
     Dates: start: 20160527, end: 20160530
  4. VENETLIN [Concomitant]
     Active Substance: ALBUTEROL SULFATE
     Route: 048
     Dates: start: 20160527, end: 20160530
  5. CALONAL [Concomitant]
     Active Substance: ACETAMINOPHEN
     Dosage: UNCERTAIN DOSAGE AND TON
     Route: 048
  6. ASVERIN (TIPEPIDINE HIBENZATE) [Concomitant]
     Active Substance: TIPEPIDINE HIBENZATE
     Route: 048
     Dates: start: 20160527, end: 20160530

REACTIONS (4)
  - Hallucination, visual [Recovered/Resolved]
  - Decreased appetite [Recovered/Resolved]
  - Dehydration [Recovered/Resolved]
  - Bronchitis [Not Recovered/Not Resolved]

NARRATIVE: CASE EVENT DATE: 20160530
